FAERS Safety Report 6039699-5 (Version None)
Quarter: 2009Q1

REPORT INFORMATION
  Report Type: 
  Country: None (occurrence: None)
  Receive Date: 20090116
  Receipt Date: 20081020
  Transmission Date: 20090719
  Serious: No
  Sender: FDA-Public Use
  Company Number: US-KINGPHARMUSA00001-K200801211

PATIENT
  Sex: Female
  Weight: 47.166 kg

DRUGS (2)
  1. CORGARD [Suspect]
     Indication: HYPERTENSION
     Dosage: 10 MG (ONE HALF OF A 20 MG TABLET), QD
     Route: 048
  2. CRESTOR [Concomitant]
     Indication: HYPERCHOLESTEROLAEMIA
     Dosage: 5 MG, QD
     Dates: start: 20080501

REACTIONS (2)
  - DRUG DISPENSING ERROR [None]
  - TREMOR [None]
